FAERS Safety Report 21304937 (Version 1)
Quarter: 2022Q3

REPORT INFORMATION
  Report Type: Report from Study
  Country: IL (occurrence: IL)
  Receive Date: 20220907
  Receipt Date: 20220907
  Transmission Date: 20221026
  Serious: Yes (Hospitalization)
  Sender: FDA-Public Use
  Company Number: IL-ABBVIE-20K-082-3521149-00

PATIENT
  Age: 51 Year
  Sex: Male
  Weight: 90 kg

DRUGS (19)
  1. VENETOCLAX [Suspect]
     Active Substance: VENETOCLAX
     Indication: Chronic lymphocytic leukaemia
     Route: 048
     Dates: start: 20191016, end: 2019
  2. VENETOCLAX [Suspect]
     Active Substance: VENETOCLAX
     Route: 048
     Dates: start: 20191113, end: 202108
  3. OBINUTUZUMAB [Suspect]
     Active Substance: OBINUTUZUMAB
     Indication: CD20 antigen positive
     Dosage: PRESCRIBED DOSE 1000 MG
     Route: 065
     Dates: start: 20190925, end: 20190926
  4. OBINUTUZUMAB [Suspect]
     Active Substance: OBINUTUZUMAB
     Dosage: PRESCRIBED DOSE 1000 MG
     Route: 065
     Dates: start: 20191003, end: 20191003
  5. OBINUTUZUMAB [Suspect]
     Active Substance: OBINUTUZUMAB
     Dosage: PRESCRIBED DOSE 1000 MG
     Route: 065
     Dates: start: 20191010, end: 20191010
  6. OBINUTUZUMAB [Suspect]
     Active Substance: OBINUTUZUMAB
     Dosage: PRESCRIBED DOSE 1000 MG
     Route: 065
     Dates: start: 20191024, end: 20191024
  7. OBINUTUZUMAB [Suspect]
     Active Substance: OBINUTUZUMAB
     Dosage: PRESCRIBED DOSE 1000 MG
     Route: 065
     Dates: start: 20191121, end: 20191121
  8. OBINUTUZUMAB [Suspect]
     Active Substance: OBINUTUZUMAB
     Dosage: PRESCRIBED DOSE 1000 MG
     Route: 065
     Dates: start: 20191218, end: 20191218
  9. OBINUTUZUMAB [Suspect]
     Active Substance: OBINUTUZUMAB
     Dosage: PRESCRIBED DOSE 1000 MG
     Route: 065
     Dates: start: 20200115, end: 20200115
  10. OBINUTUZUMAB [Suspect]
     Active Substance: OBINUTUZUMAB
     Dosage: PRESCRIBED DOSE 1000 MG
     Route: 065
     Dates: start: 20200304, end: 20200304
  11. ACETAMINOPHEN [Concomitant]
     Active Substance: ACETAMINOPHEN
     Indication: Premedication
     Dates: start: 20190925
  12. PROMETHAZINE HYDROCHLORIDE [Concomitant]
     Active Substance: PROMETHAZINE HYDROCHLORIDE
     Indication: Premedication
     Dates: start: 20190925
  13. DEXAMETHASONE [Concomitant]
     Active Substance: DEXAMETHASONE
     Indication: Premedication
     Dates: start: 20190925
  14. LORATADINE [Concomitant]
     Active Substance: LORATADINE
     Indication: Premedication
     Dates: start: 20190925
  15. RANITIDINE [Concomitant]
     Active Substance: RANITIDINE
     Indication: Premedication
     Dates: start: 20190925
  16. ZOVIRAX [Concomitant]
     Active Substance: ACYCLOVIR
     Indication: Antiviral prophylaxis
     Dates: start: 20190919
  17. ALLOPURINOL [Concomitant]
     Active Substance: ALLOPURINOL
     Indication: Prophylaxis
     Dates: start: 20190919, end: 20191121
  18. DISEPTYL FORTE [Concomitant]
     Indication: Antifungal prophylaxis
     Dates: start: 20190919
  19. PFIZER-BIONTECH COVID-19 VACCINE [Concomitant]
     Active Substance: TOZINAMERAN
     Indication: COVID-19 immunisation
     Dosage: COVID-19 29/M PFIZER VACCINE
     Route: 030
     Dates: start: 20210817, end: 20210817

REACTIONS (7)
  - COVID-19 [Recovered/Resolved]
  - Hypogammaglobulinaemia [Recovered/Resolved]
  - Hypogammaglobulinaemia [Not Recovered/Not Resolved]
  - Hepatic steatosis [Recovered/Resolved]
  - Arthralgia [Recovered/Resolved]
  - Dizziness [Recovered/Resolved]
  - Respiratory tract infection [Recovered/Resolved]

NARRATIVE: CASE EVENT DATE: 20200201
